FAERS Safety Report 8045420-1 (Version None)
Quarter: 2012Q1

REPORT INFORMATION
  Report Type: 
  Country: None (occurrence: None)
  Receive Date: 20120113
  Receipt Date: 20120111
  Transmission Date: 20120608
  Serious: Yes (Death, Hospitalization)
  Sender: FDA-Public Use
  Company Number: AU-B.I. PHARMACEUTICALS,INC./RIDGEFIELD-2011-AU-01664AU

PATIENT
  Sex: Female
  Weight: 74 kg

DRUGS (7)
  1. RISEDRONATE SODIUM [Concomitant]
  2. PRADAXA [Suspect]
     Indication: ATRIAL FIBRILLATION
     Dosage: 220 MG
     Dates: start: 20110819
  3. FUROSEMIDE [Concomitant]
  4. CARVEDILOL [Concomitant]
  5. MOVIPREP [Concomitant]
  6. RAMIPRIL [Concomitant]
  7. CELECOXIB [Concomitant]

REACTIONS (5)
  - SKIN HAEMORRHAGE [None]
  - ASTHENIA [None]
  - OCCULT BLOOD POSITIVE [None]
  - GASTROINTESTINAL HAEMORRHAGE [None]
  - ORGAN FAILURE [None]
